FAERS Safety Report 18618749 (Version 15)
Quarter: 2021Q3

REPORT INFORMATION
  Report Type: Report from Study
  Country: KR (occurrence: KR)
  Receive Date: 20201215
  Receipt Date: 20210709
  Transmission Date: 20211014
  Serious: Yes (Hospitalization)
  Sender: FDA-Public Use
  Company Number: KR-EISAI MEDICAL RESEARCH-EC-2020-085265

PATIENT
  Age: 70 Year
  Sex: Male
  Weight: 63.35 kg

DRUGS (13)
  1. PEMBROLIZUMAB. [Suspect]
     Active Substance: PEMBROLIZUMAB
     Route: 041
     Dates: start: 20201020, end: 20201020
  2. JANUVIA [Concomitant]
     Active Substance: SITAGLIPTIN PHOSPHATE
     Dates: start: 201801
  3. LENVATINIB [Suspect]
     Active Substance: LENVATINIB
     Indication: NON-SMALL CELL LUNG CANCER METASTATIC
     Route: 048
     Dates: start: 20200707
  4. MAO?B [Concomitant]
     Dates: start: 201712
  5. CRESNON [Concomitant]
     Dates: start: 201801
  6. MUCOSTA [Concomitant]
     Active Substance: REBAMIPIDE
     Dates: start: 201712
  7. MAGO [Concomitant]
     Dates: start: 20200513
  8. PEMBROLIZUMAB. [Suspect]
     Active Substance: PEMBROLIZUMAB
     Indication: NON-SMALL CELL LUNG CANCER METASTATIC
     Route: 041
     Dates: start: 20200707, end: 20200929
  9. ASPIRIN PROTECT [Concomitant]
     Active Substance: ASPIRIN
     Dates: start: 201712
  10. MADOPAR [Concomitant]
     Active Substance: BENSERAZIDE HYDROCHLORIDE\LEVODOPA
     Dates: start: 201712
  11. MOTILITONE [Concomitant]
     Active Substance: HERBALS
     Dates: start: 201712
  12. CODAEWON FORTE [Concomitant]
     Dates: start: 20200617
  13. DIABEX [Concomitant]
     Active Substance: METFORMIN HYDROCHLORIDE
     Dates: start: 201801

REACTIONS (1)
  - Thyroiditis [Not Recovered/Not Resolved]

NARRATIVE: CASE EVENT DATE: 20201101
